FAERS Safety Report 5478697-7 (Version None)
Quarter: 2007Q4

REPORT INFORMATION
  Report Type: 
  Country: None (occurrence: None)
  Receive Date: 20071005
  Receipt Date: 20070927
  Transmission Date: 20080405
  Serious: Yes (Hospitalization)
  Sender: FDA-Public Use
  Company Number: GR-ABBOTT-07P-066-0418484-00

PATIENT
  Age: 73 Year
  Sex: Male
  Weight: 68.5 kg

DRUGS (12)
  1. ZEMPLAR [Suspect]
     Indication: HYPERPARATHYROIDISM SECONDARY
     Route: 042
     Dates: start: 20070612, end: 20070910
  2. ZEMPLAR [Suspect]
     Route: 042
     Dates: start: 20070911
  3. EPOETIN BETA [Concomitant]
     Indication: ANAEMIA
     Route: 042
     Dates: start: 20000101
  4. NEUROBION [Concomitant]
     Indication: RENAL FAILURE CHRONIC
     Route: 042
     Dates: start: 20000101
  5. FOLIC ACID [Concomitant]
     Indication: RENAL FAILURE CHRONIC
     Route: 048
     Dates: start: 20000101
  6. SEVELAMER [Concomitant]
     Indication: HYPERPARATHYROIDISM SECONDARY
     Route: 048
     Dates: start: 20000101
  7. TRIAN [Concomitant]
     Indication: RENAL FAILURE CHRONIC
     Route: 042
     Dates: start: 20000101
  8. IRBESARTAN [Concomitant]
     Indication: HYPERTENSION
     Route: 048
     Dates: start: 20070802
  9. RAMIPRIL [Concomitant]
     Indication: HYPERTENSION
     Route: 048
     Dates: start: 20070802
  10. CATAPRESUN [Concomitant]
     Indication: HYPERTENSION
     Route: 048
     Dates: start: 20070802
  11. ASPIRIN [Concomitant]
     Indication: ANTIPLATELET THERAPY
     Route: 048
     Dates: start: 20000101
  12. CLOPIDOGREL BISULFATE [Concomitant]
     Indication: ANTIPLATELET THERAPY
     Route: 048
     Dates: start: 20000101

REACTIONS (1)
  - TRANSIENT ISCHAEMIC ATTACK [None]
